FAERS Safety Report 5913315-2 (Version None)
Quarter: 2008Q3

REPORT INFORMATION
  Report Type: 
  Country: None (occurrence: None)
  Receive Date: 20080909
  Receipt Date: 20070817
  Transmission Date: 20090109
  Serious: Yes (Hospitalization)
  Sender: FDA-Public Use
  Company Number: 163-20785-07081120

PATIENT
  Age: 71 Year
  Sex: Male
  Weight: 115.5 kg

DRUGS (20)
  1. THALOMID [Suspect]
     Indication: MULTIPLE MYELOMA
     Dosage: ORAL
     Route: 048
  2. DEXAMETHASONE TAB [Suspect]
     Indication: DRUG USE FOR UNKNOWN INDICATION
  3. PROCRIT [Suspect]
     Indication: ANAEMIA
     Dosage: 120000 IU, 1 IN 1 WEEK, SUBCUTANEOUS ; 80000 IU, 1 IN 1 WEEK, SUBCUTANEOUS
     Route: 058
     Dates: start: 20070515, end: 20070605
  4. PROCRIT [Suspect]
     Indication: ANAEMIA
     Dosage: 120000 IU, 1 IN 1 WEEK, SUBCUTANEOUS ; 80000 IU, 1 IN 1 WEEK, SUBCUTANEOUS
     Route: 058
     Dates: start: 20070612
  5. OXYCODONE IR (OXYCODONE) [Concomitant]
  6. HEPARIN [Concomitant]
  7. LOVENOX [Concomitant]
  8. COUMADIN [Concomitant]
  9. ASPIRIN [Concomitant]
  10. ACYCLOVIR [Concomitant]
  11. SIMETHICONE (DIMETICONE, ACTIVATED) [Concomitant]
  12. ACETAMINOPHEN [Concomitant]
  13. MAGNESIUM HYDROXIDE TAB [Concomitant]
  14. PRAZOSIN GITS [Concomitant]
  15. MULTIVITAMIN (MULTIVITAMIN) [Concomitant]
  16. FENTANYL-100 [Concomitant]
  17. HALOPERIDOL [Concomitant]
  18. DOCUSATE SODIUM (DOCUSATE SODIUM) [Concomitant]
  19. BISACODYL (BISACODYL) (TABLETS) [Concomitant]
  20. OMEPRAZOLE [Concomitant]

REACTIONS (3)
  - BACK PAIN [None]
  - DEEP VEIN THROMBOSIS [None]
  - EMBOLISM [None]
